FAERS Safety Report 11147621 (Version 1)
Quarter: 2015Q2

REPORT INFORMATION
  Report Type: Spontaneous
  Country: JP (occurrence: JP)
  Receive Date: 20150529
  Receipt Date: 20150529
  Transmission Date: 20150821
  Serious: Yes (Death, Other)
  Sender: FDA-Public Use
  Company Number: JP-TAKEDA-2015MPI003491

PATIENT

DRUGS (2)
  1. VELCADE [Suspect]
     Active Substance: BORTEZOMIB
     Indication: PLASMA CELL MYELOMA
     Dosage: UNK
     Route: 042
  2. DEXAMETHASONE. [Concomitant]
     Active Substance: DEXAMETHASONE
     Dosage: UNK
     Route: 065

REACTIONS (25)
  - Neuropathy peripheral [Unknown]
  - Herpes zoster [Unknown]
  - Diarrhoea [Unknown]
  - Constipation [Unknown]
  - Liver disorder [Unknown]
  - Cerebral haemorrhage [Fatal]
  - Hyperglycaemia [Unknown]
  - Haemolytic uraemic syndrome [Unknown]
  - Fatigue [Unknown]
  - Pneumonia [Unknown]
  - Protein-losing gastroenteropathy [Unknown]
  - Herpes simplex [Unknown]
  - Decreased appetite [Unknown]
  - Gastrointestinal disorder [Unknown]
  - Performance status decreased [Unknown]
  - Nausea [Unknown]
  - Cytomegalovirus infection [Unknown]
  - Sepsis [Unknown]
  - Ataxia [Unknown]
  - Vomiting [Unknown]
  - Mental disorder [Unknown]
  - Tumour lysis syndrome [Fatal]
  - Hypoaesthesia [Unknown]
  - Dysgeusia [Unknown]
  - Subileus [Unknown]
